FAERS Safety Report 7983977-7 (Version None)
Quarter: 2011Q4

REPORT INFORMATION
  Report Type: 
  Country: None (occurrence: None)
  Receive Date: 20111216
  Receipt Date: 20111213
  Transmission Date: 20120403
  Serious: No
  Sender: FDA-Public Use
  Company Number: US-BIOGENIDEC-2011BI047162

PATIENT
  Age: 34 Year
  Sex: Female

DRUGS (1)
  1. AVONEX [Suspect]
     Indication: MULTIPLE SCLEROSIS
     Route: 030
     Dates: start: 20110701

REACTIONS (7)
  - WEIGHT DECREASED [None]
  - INJURY ASSOCIATED WITH DEVICE [None]
  - FEAR OF NEEDLES [None]
  - PYREXIA [None]
  - MYALGIA [None]
  - UNDERDOSE [None]
  - PAIN [None]
